FAERS Safety Report 9511744 (Version 3)
Quarter: 2013Q4

REPORT INFORMATION
  Report Type: Spontaneous
  Country: US (occurrence: US)
  Receive Date: 20130910
  Receipt Date: 20131018
  Transmission Date: 20140711
  Serious: Yes (Hospitalization)
  Sender: FDA-Public Use
  Company Number: US-TEVA-430703USA

PATIENT
  Sex: Female

DRUGS (12)
  1. AZILECT [Suspect]
     Indication: PARKINSON^S DISEASE
     Dosage: 1 MILLIGRAM DAILY;
     Route: 048
     Dates: start: 2010
  2. PRAMIPEXOLE [Suspect]
     Indication: RESTLESS LEGS SYNDROME
     Dosage: 1 MILLIGRAM DAILY;
     Route: 048
  3. PRAMIPEXOLE [Suspect]
     Indication: PARKINSON^S DISEASE
  4. LEVSIN [Concomitant]
     Indication: IRRITABLE BOWEL SYNDROME
  5. XANAX [Concomitant]
     Indication: ANXIETY
  6. CALTRATE [Concomitant]
  7. VITAMIN D [Concomitant]
  8. CENTRUM SILVER [Concomitant]
  9. THERATEARS [Concomitant]
  10. VITAMIN C [Concomitant]
  11. SUPER B COMPLEX [Concomitant]
  12. ALIGN (PROBIOTIC) [Concomitant]

REACTIONS (5)
  - Mobility decreased [Recovered/Resolved]
  - Quality of life decreased [Not Recovered/Not Resolved]
  - Abdominal distension [Not Recovered/Not Resolved]
  - Abdominal pain [Not Recovered/Not Resolved]
  - Abdominal discomfort [Not Recovered/Not Resolved]
